FAERS Safety Report 4815599-0 (Version None)
Quarter: 2005Q4

REPORT INFORMATION
  Report Type: 
  Country: None (occurrence: None)
  Receive Date: 20051027
  Receipt Date: 20051011
  Transmission Date: 20060501
  Serious: Yes (Hospitalization, Other)
  Sender: FDA-Public Use
  Company Number: HQWYE059817OCT05

PATIENT
  Age: 68 Year
  Sex: Male

DRUGS (5)
  1. AMIODARONE HCL [Suspect]
     Dosage: SEE IMAGE
     Route: 065
  2. AMIODARONE HCL [Suspect]
     Dosage: SEE IMAGE
     Route: 065
  3. FUROSEMIDE [Concomitant]
  4. LISINOPRIL [Concomitant]
  5. BISOPROLOL (BISOPROLOL) [Concomitant]

REACTIONS (10)
  - ATELECTASIS [None]
  - CARDIAC FAILURE [None]
  - CARDIOMEGALY [None]
  - CORONARY ARTERY DISEASE [None]
  - CORONARY ARTERY STENOSIS [None]
  - DYSPNOEA [None]
  - MITRAL VALVE INCOMPETENCE [None]
  - PALPITATIONS [None]
  - PNEUMONITIS [None]
  - PULMONARY TOXICITY [None]
